FAERS Safety Report 8557584 (Version 3)
Quarter: 2012Q4

REPORT INFORMATION
  Report Type: 
  Country: US (occurrence: US)
  Receive Date: 20120511
  Receipt Date: 20120828
  Transmission Date: 20130627
  Serious: Yes (Hospitalization, Other)
  Sender: FDA-Public Use
  Company Number: US-ELI_LILLY_AND_COMPANY-US201205000444

PATIENT
  Age: 45 None
  Sex: Female
  Weight: 70.3 kg

DRUGS (27)
  1. CYMBALTA [Suspect]
     Indication: GENERALISED ANXIETY DISORDER
     Dosage: 90 mg, qd
     Route: 048
  2. CYMBALTA [Suspect]
     Dosage: 60 mg, qd
  3. CYMBALTA [Suspect]
     Dosage: 90 mg, qd
     Route: 048
  4. XANAX [Concomitant]
     Indication: ANXIETY
     Dosage: UNK, unknown
  5. XANAX [Concomitant]
     Dosage: UNK, unknown
  6. LYRICA [Concomitant]
     Dosage: UNK, unknown
  7. PREDNISONE [Concomitant]
     Indication: ASTHMA
     Dosage: UNK, unknown
     Dates: start: 2006
  8. PREDNISONE [Concomitant]
     Dosage: UNK, unknown
     Dates: start: 2006
  9. ADVAIR [Concomitant]
     Dosage: UNK, unknown
  10. ALBUTEROL SULFATE [Concomitant]
     Indication: ASTHMA
     Dosage: UNK, unknown
  11. VITAMINS [Concomitant]
     Dosage: UNK, unknown
  12. COMBIVENT [Concomitant]
     Indication: ASTHMA
     Dosage: UNK, unknown
  13. DUONEB [Concomitant]
     Dosage: UNK, unknown
  14. FLONASE [Concomitant]
     Dosage: UNK, unknown
  15. FUROSEMIDE [Concomitant]
     Indication: FLUID RETENTION
     Dosage: UNK, unknown
  16. KLOR-CON [Concomitant]
     Dosage: UNK, unknown
  17. OMEPRAZOLE [Concomitant]
     Indication: ULCER
     Dosage: UNK, unknown
  18. SINGULAIR [Concomitant]
     Indication: ASTHMA
     Dosage: UNK, unknown
  19. THEOPHYLLINE [Concomitant]
     Indication: ASTHMA
     Dosage: UNK, unknown
  20. TOPIRAMATE [Concomitant]
     Indication: MIGRAINE
     Dosage: UNK, unknown
  21. TRICOR [Concomitant]
     Indication: BLOOD CHOLESTEROL INCREASED
     Dosage: UNK, unknown
  22. VERAPAMIL [Concomitant]
     Dosage: UNK, unknown
  23. ADVAIR DISKUS [Concomitant]
     Indication: ASTHMA
     Dosage: UNK, bid
  24. RECLAST [Concomitant]
     Indication: OSTEOPOROSIS
     Dosage: UNK, other
  25. CHOLECALCIFEROL [Concomitant]
     Indication: VITAMIN D DECREASED
     Dosage: 50000 IU, 3/W
  26. MAGNESIUM [Concomitant]
     Dosage: 500 mg, UNK
  27. CALCIUM [Concomitant]

REACTIONS (15)
  - Pneumonia [Unknown]
  - Sepsis [Unknown]
  - Staphylococcal infection [Unknown]
  - Rib fracture [Unknown]
  - Weight decreased [Unknown]
  - Addison^s disease [Not Recovered/Not Resolved]
  - Drug intolerance [Unknown]
  - Osteoarthritis [Not Recovered/Not Resolved]
  - Osteoporosis [Not Recovered/Not Resolved]
  - Major depression [Unknown]
  - Anxiety [Not Recovered/Not Resolved]
  - Drug ineffective [Recovered/Resolved]
  - Insomnia [Recovered/Resolved]
  - Blood pressure increased [Recovered/Resolved]
  - Vitamin B12 deficiency [Unknown]
